FAERS Safety Report 11277572 (Version 2)
Quarter: 2015Q3

REPORT INFORMATION
  Report Type: Spontaneous
  Country: US (occurrence: US)
  Receive Date: 20150716
  Receipt Date: 20150804
  Transmission Date: 20151125
  Serious: Yes (Death, Hospitalization)
  Sender: FDA-Public Use
  Company Number: US-ACTELION-A-US2015-116160

PATIENT
  Age: 76 Year
  Sex: Female

DRUGS (3)
  1. VELETRI [Suspect]
     Active Substance: EPOPROSTENOL
     Indication: PULMONARY ARTERIAL HYPERTENSION
     Dosage: 26 NG, PER MIN
     Route: 042
     Dates: start: 20141203
  2. VELETRI [Suspect]
     Active Substance: EPOPROSTENOL
     Dosage: 28 NG, PER MIN
     Route: 042
     Dates: end: 20150728
  3. WARFARIN [Concomitant]
     Active Substance: WARFARIN

REACTIONS (8)
  - Haemoptysis [Unknown]
  - Malaise [Unknown]
  - Escherichia infection [Unknown]
  - Staphylococcal infection [Unknown]
  - Dyspnoea [Unknown]
  - Cough [Unknown]
  - Chest pain [Unknown]
  - Cardiac failure [Fatal]
